FAERS Safety Report 8863000 (Version 1)
Quarter: 2012Q4

REPORT INFORMATION
  Report Type: 
  Country: US (occurrence: US)
  Receive Date: 20121026
  Receipt Date: 20121026
  Transmission Date: 20130627
  Serious: No
  Sender: FDA-Public Use
  Company Number: US-ALLERGAN-1200209US

PATIENT
  Sex: Male

DRUGS (3)
  1. ALPHAGAN P [Suspect]
     Indication: GLAUCOMA DRUG THERAPY
     Dosage: 1 drop to both eyes twice daily in the morning and night
     Route: 047
     Dates: start: 201110
  2. COSOPT [Suspect]
     Indication: GLAUCOMA DRUG THERAPY
     Dosage: 1 drop twice per day in the AM and PM to both eyes
     Route: 047
     Dates: start: 201110
  3. XALATAN [Suspect]
     Indication: DRUG USE FOR UNKNOWN INDICATION
     Dosage: 1 drop at night to each eye
     Route: 047
     Dates: start: 201110

REACTIONS (1)
  - Scleral hyperaemia [Not Recovered/Not Resolved]
